FAERS Safety Report 18234755 (Version 1)
Quarter: 2020Q3

REPORT INFORMATION
  Report Type: Spontaneous
  Country: US (occurrence: US)
  Receive Date: 20200904
  Receipt Date: 20200904
  Transmission Date: 20201103
  Serious: Yes (Hospitalization, Other)
  Sender: FDA-Public Use
  Company Number: US-ASTRAZENECA-2020SF10338

PATIENT
  Age: 46 Year
  Sex: Male
  Weight: 83.9 kg

DRUGS (6)
  1. SYMBICORT [Suspect]
     Active Substance: BUDESONIDE\FORMOTEROL FUMARATE DIHYDRATE
     Indication: ASTHMA
     Dosage: 160 4.5 MCG 2 INHALATIONS BID UNKNOWN
     Route: 055
     Dates: start: 201301, end: 2016
  2. GABAPENTIN. [Concomitant]
     Active Substance: GABAPENTIN
     Indication: NEURALGIA
  3. SYMBICORT [Suspect]
     Active Substance: BUDESONIDE\FORMOTEROL FUMARATE DIHYDRATE
     Indication: BRONCHITIS CHRONIC
     Dosage: 80, 4.5 MCG,UNKNOWN UNKNOWN
     Route: 055
  4. SYMBICORT [Suspect]
     Active Substance: BUDESONIDE\FORMOTEROL FUMARATE DIHYDRATE
     Indication: BRONCHITIS CHRONIC
     Dosage: 160 4.5 MCG 2 INHALATIONS BID UNKNOWN
     Route: 055
     Dates: start: 201301, end: 2016
  5. SYMBICORT [Suspect]
     Active Substance: BUDESONIDE\FORMOTEROL FUMARATE DIHYDRATE
     Indication: ASTHMA
     Dosage: 80, 4.5 MCG,UNKNOWN UNKNOWN
     Route: 055
  6. PREDNISONE. [Concomitant]
     Active Substance: PREDNISONE
     Indication: ASTHMA

REACTIONS (14)
  - Pneumonia [Recovered/Resolved]
  - Abdominal hernia [Unknown]
  - Intestinal obstruction [Recovered/Resolved]
  - Regurgitation [Unknown]
  - Scar [Unknown]
  - Chest discomfort [Unknown]
  - Asthma [Recovered/Resolved]
  - Exercise tolerance decreased [Unknown]
  - Gastrointestinal disorder [Unknown]
  - Drug ineffective [Unknown]
  - Asphyxia [Unknown]
  - Bronchitis [Recovered/Resolved]
  - Inability to afford medication [Unknown]
  - Lethargy [Unknown]

NARRATIVE: CASE EVENT DATE: 2016
